FAERS Safety Report 7949879-7 (Version None)
Quarter: 2011Q4

REPORT INFORMATION
  Report Type: 
  Country: None (occurrence: None)
  Receive Date: 20111130
  Receipt Date: 20111129
  Transmission Date: 20120403
  Serious: Yes (Life-Threatening, Other)
  Sender: FDA-Public Use
  Company Number: CA-PFIZER INC-2011276655

PATIENT
  Age: 42 Year
  Sex: Female

DRUGS (2)
  1. PRISTIQ [Suspect]
     Dosage: 100 MG, 1X/DAY
     Dates: start: 20111005
  2. PRISTIQ [Suspect]
     Indication: DEPRESSION
     Dosage: 50 MG, 1X/DAY
     Dates: start: 20110801, end: 20111004

REACTIONS (10)
  - SUICIDAL IDEATION [None]
  - DIZZINESS [None]
  - INSOMNIA [None]
  - SELF-INJURIOUS IDEATION [None]
  - FEELING ABNORMAL [None]
  - AGITATION [None]
  - VOMITING [None]
  - HEADACHE [None]
  - VISION BLURRED [None]
  - NAUSEA [None]
